FAERS Safety Report 7151035-X (Version None)
Quarter: 2010Q4

REPORT INFORMATION
  Report Type: 
  Country: None (occurrence: None)
  Receive Date: 20101126
  Receipt Date: 20101116
  Transmission Date: 20110411
  Serious: Yes (Hospitalization)
  Sender: FDA-Public Use
  Company Number: 2010P1002676

PATIENT
  Age: 67 Year
  Sex: Female

DRUGS (5)
  1. METFORMIN HCL [Suspect]
     Indication: DIABETES MELLITUS
     Dosage: 500 MG, BID;
  2. ISOSORBIDE MONONITRATE [Concomitant]
  3. .. [Concomitant]
  4. SALICYLIC ACID [Concomitant]
  5. DILTIAZEM [Concomitant]

REACTIONS (4)
  - ABDOMINAL DISTENSION [None]
  - HEPATITIS CHOLESTATIC [None]
  - HEPATOMEGALY [None]
  - HYPERGLYCAEMIA [None]
